FAERS Safety Report 5165710-X (Version None)
Quarter: 2006Q4

REPORT INFORMATION
  Report Type: 
  Country: None (occurrence: None)
  Receive Date: 20061206
  Receipt Date: 20061204
  Transmission Date: 20070319
  Serious: Yes (Death)
  Sender: FDA-Public Use
  Company Number: BR-JNJFOC-20061105811

PATIENT
  Age: 79 Year
  Sex: Male

DRUGS (2)
  1. REMINYL ER [Suspect]
     Indication: DEMENTIA ALZHEIMER'S TYPE
     Route: 048
  2. LEXOTAN [Concomitant]
     Route: 048

REACTIONS (2)
  - DEATH [None]
  - DEMENTIA ALZHEIMER'S TYPE [None]
